FAERS Safety Report 4361295-6 (Version None)
Quarter: 2004Q2

REPORT INFORMATION
  Report Type: 
  Country: None (occurrence: None)
  Receive Date: 20040520
  Receipt Date: 20040511
  Transmission Date: 20050107
  Serious: Yes (Other)
  Sender: FDA-Public Use
  Company Number: US-AMGEN-US076168

PATIENT
  Sex: Female

DRUGS (1)
  1. ENBREL [Suspect]
     Indication: JUVENILE ARTHRITIS
     Route: 058
     Dates: start: 19990101

REACTIONS (2)
  - GASTROENTERITIS EOSINOPHILIC [None]
  - LYMPHOPLASMACYTOID LYMPHOMA/IMMUNOCYTOMA STAGE IV [None]
